FAERS Safety Report 23352473 (Version 1)
Quarter: 2023Q4

REPORT INFORMATION
  Report Type: Other
  Country: GB (occurrence: GB)
  Receive Date: 20231229
  Receipt Date: 20231229
  Transmission Date: 20240110
  Serious: Yes (Disabling, Other)
  Sender: FDA-Public Use
  Company Number: GB-MACLEODS PHARMACEUTICALS US LTD-MAC2023045032

PATIENT

DRUGS (1)
  1. ARIPIPRAZOLE [Suspect]
     Active Substance: ARIPIPRAZOLE
     Indication: Depression
     Dosage: UNK
     Route: 065
     Dates: start: 20230721

REACTIONS (3)
  - Androgenetic alopecia [Not Recovered/Not Resolved]
  - Medication error [Unknown]
  - Appetite disorder [Unknown]

NARRATIVE: CASE EVENT DATE: 20231102
